FAERS Safety Report 5485419-2 (Version None)
Quarter: 2007Q4

REPORT INFORMATION
  Report Type: 
  Country: None (occurrence: None)
  Receive Date: 20071002
  Receipt Date: 20060808
  Transmission Date: 20080405
  Serious: No
  Sender: FDA-Public Use
  Company Number: 2006097346

PATIENT
  Age: 72 Year
  Sex: Male
  Weight: 95.2554 kg

DRUGS (9)
  1. DEPO-TESTOSTERONE [Suspect]
     Indication: BLOOD TESTOSTERONE DECREASED
     Dosage: (1 IN 2 WK)
     Dates: start: 20060301
  2. CALCIUM (CALCIUM) [Concomitant]
  3. MAGNESIUM (MAGNESIUM) [Concomitant]
  4. OMEGA 3 (FISH OIL) [Concomitant]
  5. LORATADINE [Concomitant]
  6. FLONASE [Concomitant]
  7. MONTELUKAST SODIUM [Concomitant]
  8. ALL OTHER THERAPEUTIC PRODUCTS (ALL OTHER THERAPEUTIC PRODUCTS) [Concomitant]
  9. ACE INHIBITORS AND DIURETICS (ACE INHIBITORS AND DIURETICS) [Concomitant]

REACTIONS (10)
  - AMNESIA [None]
  - ARTHRALGIA [None]
  - ARTHRITIS [None]
  - DYSPNOEA [None]
  - FATIGUE [None]
  - INSOMNIA [None]
  - NIGHT SWEATS [None]
  - PAIN IN EXTREMITY [None]
  - SKIN DISCOLOURATION [None]
  - WEIGHT DECREASED [None]
